FAERS Safety Report 23154760 (Version 1)
Quarter: 2023Q4

REPORT INFORMATION
  Report Type: Report from Study
  Country: US (occurrence: US)
  Receive Date: 20231107
  Receipt Date: 20231107
  Transmission Date: 20240109
  Serious: Yes (Other)
  Sender: FDA-Public Use
  Company Number: US-BAYER-2023A155937

PATIENT
  Age: 61 Year
  Sex: Male

DRUGS (1)
  1. XOFIGO [Suspect]
     Active Substance: RADIUM RA-223 DICHLORIDE
     Indication: Hormone-refractory prostate cancer
     Dosage: 91.20 UCI, EVERY 28 DAYS
     Route: 042
     Dates: start: 20230727, end: 20230727

REACTIONS (1)
  - General physical health deterioration [Unknown]
